FAERS Safety Report 5594634-9 (Version None)
Quarter: 2008Q1

REPORT INFORMATION
  Report Type: 
  Country: None (occurrence: None)
  Receive Date: 20080117
  Receipt Date: 20080108
  Transmission Date: 20080703
  Serious: Yes (Other)
  Sender: FDA-Public Use
  Company Number: NZ-ALLERGAN-0602754US

PATIENT
  Sex: Male

DRUGS (2)
  1. COMBIGAN [Suspect]
     Indication: INTRAOCULAR PRESSURE INCREASED
     Dosage: UNK, BID
     Route: 047
     Dates: start: 20060523, end: 20060707
  2. BIMATOPROST UNK [Concomitant]
     Indication: GLAUCOMA

REACTIONS (1)
  - GANGRENE [None]
